FAERS Safety Report 16518331 (Version 6)
Quarter: 2021Q1

REPORT INFORMATION
  Report Type: Spontaneous
  Country: US (occurrence: US)
  Receive Date: 20190702
  Receipt Date: 20210114
  Transmission Date: 20210419
  Serious: No
  Sender: FDA-Public Use
  Company Number: US-PFIZER INC-2019279388

PATIENT
  Age: 61 Year
  Sex: Male
  Weight: 102 kg

DRUGS (6)
  1. PROBIOTICS [Concomitant]
     Active Substance: PROBIOTICS NOS
     Dosage: UNK, DAILY
     Dates: start: 201802
  2. UCERIS [Concomitant]
     Active Substance: BUDESONIDE
     Dosage: 9 MG, UNK
     Dates: start: 201908
  3. XELJANZ [Suspect]
     Active Substance: TOFACITINIB CITRATE
     Dosage: 5 MG
  4. XELJANZ [Suspect]
     Active Substance: TOFACITINIB CITRATE
     Indication: COLITIS
     Dosage: 10 MG, 2X/DAY
     Dates: start: 20190201
  5. CORTISONE [HYDROCORTISONE] [Concomitant]
     Dosage: UNK
     Dates: start: 201406
  6. XELJANZ [Suspect]
     Active Substance: TOFACITINIB CITRATE
     Indication: COLITIS ULCERATIVE
     Dosage: 10 MG, 1X/DAY

REACTIONS (5)
  - Confusional state [Unknown]
  - Memory impairment [Unknown]
  - Intentional product misuse [Unknown]
  - Condition aggravated [Recovering/Resolving]
  - Blood triglycerides increased [Unknown]

NARRATIVE: CASE EVENT DATE: 20190201
